FAERS Safety Report 23356006 (Version 2)
Quarter: 2024Q1

REPORT INFORMATION
  Report Type: Spontaneous
  Country: US (occurrence: US)
  Receive Date: 20240102
  Receipt Date: 20240104
  Transmission Date: 20240410
  Serious: No
  Sender: FDA-Public Use
  Company Number: US-AMGEN-USASP2023232834

PATIENT

DRUGS (1)
  1. KYPROLIS [Interacting]
     Active Substance: CARFILZOMIB
     Indication: Product used for unknown indication
     Dosage: UNK, 2 VIALS
     Route: 065

REACTIONS (2)
  - Product storage error [Unknown]
  - Intercepted product administration error [Unknown]

NARRATIVE: CASE EVENT DATE: 20231226
